FAERS Safety Report 8572000-1 (Version None)
Quarter: 2012Q3

REPORT INFORMATION
  Report Type: 
  Country: None (occurrence: None)
  Receive Date: 20120806
  Receipt Date: 20120726
  Transmission Date: 20120928
  Serious: Yes (Death, Hospitalization)
  Sender: FDA-Public Use
  Company Number: DE-BRISTOL-MYERS SQUIBB COMPANY-16812737

PATIENT
  Age: 75 Year
  Sex: Male
  Weight: 75 kg

DRUGS (5)
  1. DELIX PLUS [Concomitant]
     Indication: HYPERTENSION
     Dosage: DELIX 5 PLUS
     Route: 048
  2. CETUXIMAB [Suspect]
     Indication: COLORECTAL CANCER METASTATIC
     Dosage: 1DF=770 UNITS NOT SPECIFIED
     Route: 042
     Dates: start: 20120510, end: 20120713
  3. IRINOTECAN HCL [Suspect]
     Indication: COLORECTAL CANCER METASTATIC
     Dosage: 1DF=347 UNITS NOT SPECIFIED
     Route: 042
     Dates: start: 20120510, end: 20120713
  4. FLUOROURACIL [Suspect]
     Indication: COLORECTAL CANCER METASTATIC
     Dosage: 1DF=772 UNITS NOT SPECIFIED 10JUL12-UNK 4632,QD 4 ALSO TKN,UNK-13-JUL12
     Route: 042
     Dates: start: 20120510, end: 20120713
  5. LEUCOVORIN CALCIUM [Suspect]
     Indication: COLORECTAL CANCER METASTATIC
     Dosage: 1DF=772 UNITS NOT SPECIFIED
     Route: 042
     Dates: start: 20120510, end: 20120713

REACTIONS (1)
  - FEBRILE NEUTROPENIA [None]
